FAERS Safety Report 10089817 (Version 2)
Quarter: 2014Q2

REPORT INFORMATION
  Report Type: Report from Study
  Country: US (occurrence: US)
  Receive Date: 20140421
  Receipt Date: 20140605
  Transmission Date: 20141212
  Serious: Yes (Disabling, Other)
  Sender: FDA-Public Use
  Company Number: PHEH2014US007483

PATIENT
  Sex: Male

DRUGS (13)
  1. TEKTURNA [Suspect]
     Indication: BLOOD PRESSURE ABNORMAL
     Dosage: UNK UKN, UNK
  2. DIOVAN [Suspect]
     Indication: BLOOD PRESSURE ABNORMAL
     Dosage: UNK UKN, UNK
  3. DILTIAZEM [Concomitant]
     Dosage: UNK UKN, UNK
  4. ATENOLOL [Concomitant]
     Dosage: UNK UKN, UNK
  5. FUROSEMIDE [Concomitant]
     Dosage: UNK UKN, UNK
  6. BIDIL [Concomitant]
     Dosage: UNK UKN, UNK
  7. KLOR CON [Concomitant]
     Dosage: UNK UKN, UNK
  8. VOLTAREN [Concomitant]
     Dosage: UNK UKN, UNK
  9. LIPITOR [Concomitant]
     Dosage: UNK UKN, UNK
  10. PROZAC [Concomitant]
     Dosage: UNK UKN, UNK
  11. OMEGA [Concomitant]
     Dosage: UNK UKN, UNK
  12. COENZYME Q10 [Concomitant]
     Dosage: UNK UKN, UNK
  13. BABY ASPIRIN [Concomitant]
     Dosage: UNK UKN, UNK

REACTIONS (4)
  - General physical health deterioration [Unknown]
  - Prostate cancer [Unknown]
  - Urinary tract disorder [Unknown]
  - Neuropathy peripheral [Unknown]
